FAERS Safety Report 8782033 (Version 2)
Quarter: 2012Q4

REPORT INFORMATION
  Report Type: 
  Country: US (occurrence: US)
  Receive Date: 20120913
  Receipt Date: 20121120
  Transmission Date: 20130627
  Serious: No
  Sender: FDA-Public Use
  Company Number: US-VERTEX PHARMACEUTICAL INC.-2012-020035

PATIENT
  Age: 61 Year
  Sex: Male
  Weight: 86 kg

DRUGS (3)
  1. INCIVEK [Suspect]
     Indication: HEPATITIS C
     Dosage: 750 mg, qd
     Route: 048
     Dates: start: 20120610, end: 20120902
  2. PEGASYS [Suspect]
     Indication: HEPATITIS C
     Dosage: 180 ?g, Weekly
     Route: 058
     Dates: start: 20120610
  3. RIBAVIRIN [Suspect]
     Indication: HEPATITIS C
     Dosage: 1000 mg, qd
     Route: 048
     Dates: start: 20120610

REACTIONS (6)
  - Insomnia [Not Recovered/Not Resolved]
  - Aggression [Not Recovered/Not Resolved]
  - Irritability [Not Recovered/Not Resolved]
  - Fatigue [Not Recovered/Not Resolved]
  - Rash pruritic [Recovered/Resolved]
  - Platelet count decreased [Not Recovered/Not Resolved]
